FAERS Safety Report 25361908 (Version 2)
Quarter: 2025Q2

REPORT INFORMATION
  Report Type: Report from Study
  Country: US (occurrence: US)
  Receive Date: 20250527
  Receipt Date: 20250623
  Transmission Date: 20250717
  Serious: No
  Sender: SUNOVION
  Company Number: US-SMPA-2025SPA005411AA

PATIENT

DRUGS (9)
  1. ORGOVYX [Suspect]
     Active Substance: RELUGOLIX
     Indication: Prostate cancer
     Dosage: 360 MG, SINGLE
     Route: 048
     Dates: start: 202409, end: 202409
  2. ORGOVYX [Suspect]
     Active Substance: RELUGOLIX
     Dosage: 120 MG, QD
     Route: 048
     Dates: start: 202409
  3. PREDNISONE [Concomitant]
     Active Substance: PREDNISONE
     Route: 065
  4. ABIRATERONE [Concomitant]
     Active Substance: ABIRATERONE
     Route: 065
  5. Dulcolax [Concomitant]
     Route: 065
  6. ELIQUIS [Concomitant]
     Active Substance: APIXABAN
     Route: 065
  7. MAGNESIUM GLYCINATE [Concomitant]
     Active Substance: MAGNESIUM GLYCINATE
     Route: 065
  8. VITAMINS [Concomitant]
     Active Substance: VITAMINS
     Route: 065
  9. OMEPRAZOLE [Concomitant]
     Active Substance: OMEPRAZOLE
     Route: 065

REACTIONS (9)
  - Oral discomfort [Unknown]
  - Oral mucosal blistering [Unknown]
  - Flatulence [Unknown]
  - Erythema [Unknown]
  - Insomnia [Unknown]
  - Hot flush [Unknown]
  - Fatigue [Unknown]
  - Back pain [Not Recovered/Not Resolved]
  - Arthralgia [Not Recovered/Not Resolved]
